FAERS Safety Report 14958465 (Version 1)
Quarter: 2018Q2

REPORT INFORMATION
  Report Type: Spontaneous
  Country: GB (occurrence: GB)
  Receive Date: 20180531
  Receipt Date: 20180531
  Transmission Date: 20180711
  Serious: Yes (Other)
  Sender: FDA-Public Use
  Company Number: GB-AUROBINDO-AUR-APL-2018-028456

PATIENT
  Age: 73 Year
  Sex: Female

DRUGS (2)
  1. GABAPENTIN. [Suspect]
     Active Substance: GABAPENTIN
     Indication: PAIN
     Dosage: 300 MG, UNK
     Route: 065
  2. OXYCONTIN [Suspect]
     Active Substance: OXYCODONE HYDROCHLORIDE
     Indication: PAIN
     Dosage: 10MG+20MG (STRENGTH 10MG)
     Route: 065

REACTIONS (17)
  - Peripheral coldness [Unknown]
  - Drug withdrawal syndrome [Unknown]
  - Pain [Unknown]
  - Logorrhoea [Unknown]
  - Euphoric mood [Unknown]
  - Pallor [Unknown]
  - Fall [Unknown]
  - Depression [Unknown]
  - Gastrointestinal disorder [Unknown]
  - Fatigue [Unknown]
  - Medication residue present [Unknown]
  - Nasal injury [Unknown]
  - Drug effect incomplete [Unknown]
  - Emotional distress [Unknown]
  - Paraesthesia [Unknown]
  - Abdominal distension [Unknown]
  - Constipation [Unknown]
